FAERS Safety Report 6678718-X (Version None)
Quarter: 2010Q2

REPORT INFORMATION
  Report Type: 
  Country: None (occurrence: None)
  Receive Date: 20100413
  Receipt Date: 20100402
  Transmission Date: 20101027
  Serious: Yes (Hospitalization)
  Sender: FDA-Public Use
  Company Number: PHHY2010US20635

PATIENT
  Sex: Female

DRUGS (1)
  1. EXJADE [Suspect]
     Indication: BLOOD TEST ABNORMAL
     Dosage: 750 MG, QD
     Route: 048

REACTIONS (3)
  - COLLAPSE OF LUNG [None]
  - PNEUMONIA [None]
  - SICKLE CELL ANAEMIA WITH CRISIS [None]
